FAERS Safety Report 9990610 (Version 1)
Quarter: 2014Q1

REPORT INFORMATION
  Report Type: Report from Study
  Country: US (occurrence: US)
  Receive Date: 20140310
  Receipt Date: 20140310
  Transmission Date: 20141002
  Serious: No
  Sender: FDA-Public Use
  Company Number: US-ABBVIE-13P-163-1137220-00

PATIENT
  Age: 52 Year
  Sex: Female
  Weight: 118.95 kg

DRUGS (6)
  1. HUMIRA [Suspect]
     Indication: PSORIATIC ARTHROPATHY
     Dates: start: 201106, end: 201210
  2. HUMIRA [Suspect]
     Indication: PSORIASIS
     Dates: start: 201212, end: 201301
  3. HUMIRA [Suspect]
     Dates: start: 201304, end: 201306
  4. METHOTREXATE [Concomitant]
     Indication: PRODUCT USED FOR UNKNOWN INDICATION
  5. BLOOD PRESSURE MEDICATION [Concomitant]
     Indication: PRODUCT USED FOR UNKNOWN INDICATION
  6. UNKNOWN ANTIBIOTIC [Concomitant]
     Indication: PHARYNGITIS
     Dates: start: 201304

REACTIONS (9)
  - Upper respiratory tract infection [Recovered/Resolved]
  - Sinusitis [Recovered/Resolved]
  - Upper respiratory tract infection [Recovered/Resolved]
  - Ear infection [Recovered/Resolved]
  - Sinusitis [Recovered/Resolved]
  - Pharyngitis [Recovered/Resolved]
  - Viral infection [Recovered/Resolved]
  - Cystitis [Unknown]
  - Psoriasis [Recovering/Resolving]
